APPROVED DRUG PRODUCT: MONOKET
Active Ingredient: ISOSORBIDE MONONITRATE
Strength: 20MG
Dosage Form/Route: TABLET;ORAL
Application: N020215 | Product #001 | TE Code: AB
Applicant: OMNIVIUM PHARMACEUTICALS LLC
Approved: Jun 30, 1993 | RLD: Yes | RS: Yes | Type: RX